FAERS Safety Report 7116032-9 (Version None)
Quarter: 2010Q4

REPORT INFORMATION
  Report Type: 
  Country: None (occurrence: None)
  Receive Date: 20101122
  Receipt Date: 20101111
  Transmission Date: 20110411
  Serious: Yes (Death, Other)
  Sender: FDA-Public Use
  Company Number: IN-ROCHE-736355

PATIENT
  Age: 48 Year
  Sex: Female
  Weight: 66 kg

DRUGS (10)
  1. AVASTIN [Suspect]
     Route: 042
     Dates: start: 20100619
  2. AVASTIN [Suspect]
     Route: 042
     Dates: end: 20100724
  3. ONDANSETRON [Concomitant]
     Indication: ANTIEMETIC SUPPORTIVE CARE
     Route: 042
     Dates: start: 20100724, end: 20100724
  4. DEXONA [Concomitant]
     Indication: STEROID THERAPY
     Route: 042
     Dates: start: 20100724, end: 20100724
  5. PANTOPRAZOLE SODIUM [Concomitant]
     Route: 042
     Dates: start: 20100724, end: 20100724
  6. GEMCITABINE [Concomitant]
  7. CARBOPLATIN [Concomitant]
  8. LETROZOLE [Concomitant]
     Indication: HORMONE THERAPY
  9. EXEMESTANE [Concomitant]
     Indication: HORMONE THERAPY
  10. ANASTROZOLE [Concomitant]
     Indication: HORMONE THERAPY

REACTIONS (5)
  - ALANINE AMINOTRANSFERASE INCREASED [None]
  - ASPARTATE AMINOTRANSFERASE INCREASED [None]
  - BLOOD BILIRUBIN INCREASED [None]
  - DISEASE PROGRESSION [None]
  - JAUNDICE [None]
